FAERS Safety Report 9168714 (Version 2)
Quarter: 2013Q1

REPORT INFORMATION
  Report Type: Report from Study
  Country: JP (occurrence: JP)
  Receive Date: 20130318
  Receipt Date: 20130322
  Transmission Date: 20140127
  Serious: Yes (Other)
  Sender: FDA-Public Use
  Company Number: JP-ASTRAZENECA-2013SE10687

PATIENT
  Age: 26003 Day
  Sex: Female

DRUGS (4)
  1. AZD6140 [Suspect]
     Indication: CORONARY ARTERY DISEASE
     Route: 048
     Dates: start: 20130123, end: 20130129
  2. ASA [Concomitant]
     Route: 048
     Dates: end: 20130204
  3. GASTER D [Concomitant]
     Indication: GASTRITIS PROPHYLAXIS
     Route: 048
     Dates: end: 20130204
  4. HERBESSER R [Concomitant]
     Indication: ANGINA PECTORIS
     Route: 048

REACTIONS (1)
  - Iron deficiency anaemia [Recovered/Resolved]
